FAERS Safety Report 11859384 (Version 1)
Quarter: 2015Q4

REPORT INFORMATION
  Report Type: Spontaneous
  Country: CN (occurrence: CN)
  Receive Date: 20151221
  Receipt Date: 20151221
  Transmission Date: 20160305
  Serious: Yes (Other)
  Sender: FDA-Public Use
  Company Number: CN-BAXTER-2015BAX067203

PATIENT
  Age: 65 Year
  Sex: Female
  Weight: 55 kg

DRUGS (2)
  1. DEXAMETHASONE SODIUM PHOSPHATE INJECTION [Suspect]
     Active Substance: DEXAMETHASONE SODIUM PHOSPHATE
     Indication: BACK PAIN
     Route: 041
     Dates: start: 20150421, end: 20150421
  2. 20% MANNITOL INJECTION [Suspect]
     Active Substance: MANNITOL
     Indication: OEDEMA
     Route: 041
     Dates: start: 20150421, end: 20150421

REACTIONS (3)
  - Flushing [Recovered/Resolved]
  - Rash generalised [Recovered/Resolved]
  - Dizziness [Recovered/Resolved]

NARRATIVE: CASE EVENT DATE: 20150421
